FAERS Safety Report 7528066-0 (Version None)
Quarter: 2011Q2

REPORT INFORMATION
  Report Type: 
  Country: None (occurrence: None)
  Receive Date: 20110607
  Receipt Date: 20110526
  Transmission Date: 20111010
  Serious: Yes (Hospitalization)
  Sender: FDA-Public Use
  Company Number: US-SANOFI-AVENTIS-2011SA033063

PATIENT
  Age: 59 Year
  Sex: Female

DRUGS (3)
  1. CALCIUM CITRATE [Concomitant]
     Indication: HIP FRACTURE
     Route: 065
     Dates: start: 20100901, end: 20101001
  2. VITAMIN D [Suspect]
     Indication: HIP FRACTURE
     Dosage: DOSE:400 UNIT(S)
     Route: 065
     Dates: start: 20100901, end: 20101001
  3. ERGOCALCIFEROL [Suspect]
     Dosage: DOSE:50000 UNIT(S)
     Route: 065
     Dates: start: 20090901, end: 20101001

REACTIONS (7)
  - GASTROINTESTINAL SOUNDS ABNORMAL [None]
  - ENCEPHALOPATHY [None]
  - HYPERCALCAEMIA [None]
  - NAUSEA [None]
  - LETHARGY [None]
  - VOMITING [None]
  - ABDOMINAL DISTENSION [None]
